FAERS Safety Report 9384149 (Version 1)
Quarter: 2013Q3

REPORT INFORMATION
  Report Type: Spontaneous
  Country: US (occurrence: US)
  Receive Date: 20130705
  Receipt Date: 20130705
  Transmission Date: 20140515
  Serious: No
  Sender: FDA-Public Use
  Company Number: US-B.I. PHARMACEUTICALS,INC./RIDGEFIELD-2013-BI-19047BP

PATIENT
  Sex: Female

DRUGS (1)
  1. SPIRIVA [Suspect]
     Indication: OFF LABEL USE
     Route: 055
     Dates: start: 2011

REACTIONS (4)
  - Dyspnoea [Unknown]
  - Off label use [Unknown]
  - Inappropriate schedule of drug administration [Not Recovered/Not Resolved]
  - Product quality issue [Recovered/Resolved]
